FAERS Safety Report 16143584 (Version 6)
Quarter: 2021Q2

REPORT INFORMATION
  Report Type: Report from Study
  Country: BR (occurrence: BR)
  Receive Date: 20190401
  Receipt Date: 20210514
  Transmission Date: 20210716
  Serious: Yes (Hospitalization, Other)
  Sender: FDA-Public Use
  Company Number: PHHY2018BR012460

PATIENT
  Age: 41 Year
  Sex: Female
  Weight: 78 kg

DRUGS (4)
  1. COSENTYX [Suspect]
     Active Substance: SECUKINUMAB
     Indication: ANKYLOSING SPONDYLITIS
     Dosage: UNK UNK, QW
     Route: 058
     Dates: start: 20170521
  2. COSENTYX [Suspect]
     Active Substance: SECUKINUMAB
     Dosage: UNK UNK, QMO
     Route: 058
     Dates: start: 20210425
  3. COSENTYX [Suspect]
     Active Substance: SECUKINUMAB
     Dosage: UNK UNK, QMO
     Route: 058
     Dates: start: 20190525
  4. COSENTYX [Suspect]
     Active Substance: SECUKINUMAB
     Dosage: UNK UNK, QMO
     Route: 058
     Dates: start: 20190625

REACTIONS (13)
  - Headache [Unknown]
  - Oropharyngeal discomfort [Not Recovered/Not Resolved]
  - Swelling [Not Recovered/Not Resolved]
  - Arthralgia [Not Recovered/Not Resolved]
  - Renal pain [Unknown]
  - Tuberculosis [Recovered/Resolved]
  - Weight increased [Unknown]
  - Bone pain [Not Recovered/Not Resolved]
  - Tuberculin test positive [Recovered/Resolved]
  - Pain [Unknown]
  - Nephrolithiasis [Unknown]
  - Concomitant disease aggravated [Unknown]
  - Gait disturbance [Not Recovered/Not Resolved]

NARRATIVE: CASE EVENT DATE: 201903
